FAERS Safety Report 11720982 (Version 1)
Quarter: 2015Q4

REPORT INFORMATION
  Report Type: Spontaneous
  Country: US (occurrence: US)
  Receive Date: 20151110
  Receipt Date: 20151110
  Transmission Date: 20160304
  Serious: No
  Sender: FDA-Public Use
  Company Number: US-SA-2015SA159317

PATIENT
  Age: 72 Year
  Sex: Female

DRUGS (2)
  1. PRALUENT [Suspect]
     Active Substance: ALIROCUMAB
     Route: 065
     Dates: start: 20151001
  2. ALIROCUMAB PREFILLED PEN [Concomitant]

REACTIONS (3)
  - Pyrexia [Unknown]
  - Flushing [Unknown]
  - Pain [Unknown]

NARRATIVE: CASE EVENT DATE: 20151002
